FAERS Safety Report 5235534-3 (Version None)
Quarter: 2007Q1

REPORT INFORMATION
  Report Type: 
  Country: None (occurrence: None)
  Receive Date: 20061208
  Receipt Date: 20060629
  Transmission Date: 20070707
  Serious: Yes (Other)
  Sender: FDA-Public Use
  Company Number: 2006UW13733

PATIENT
  Age: 57 Year
  Sex: Male

DRUGS (5)
  1. CRESTOR [Suspect]
     Dosage: 10 MG PO
     Route: 048
  2. LIPITOR [Concomitant]
  3. PRINIVIL [Concomitant]
  4. ZETIA [Concomitant]
  5. ATENOLOL [Concomitant]

REACTIONS (4)
  - MUSCULOSKELETAL STIFFNESS [None]
  - MYALGIA [None]
  - MYOPATHY TOXIC [None]
  - RED BLOOD CELL SEDIMENTATION RATE INCREASED [None]
